FAERS Safety Report 5952903-4 (Version None)
Quarter: 2008Q4

REPORT INFORMATION
  Report Type: 
  Country: None (occurrence: None)
  Receive Date: 20081114
  Receipt Date: 20081103
  Transmission Date: 20090506
  Serious: Yes (Other)
  Sender: FDA-Public Use
  Company Number: CN-NOVOPROD-281188

PATIENT
  Age: 64 Year
  Sex: Male

DRUGS (2)
  1. NOVOLIN R [Suspect]
     Indication: DIABETES MELLITUS
     Dosage: 10+6+6 IU
     Dates: start: 20070103
  2. NOVOLIN N [Suspect]
     Indication: DIABETES MELLITUS
     Dosage: 8 IU, QD
     Route: 058
     Dates: start: 20070103

REACTIONS (3)
  - ASTHMA [None]
  - BLOOD GLUCOSE INCREASED [None]
  - RASH [None]
